FAERS Safety Report 9490550 (Version 2)
Quarter: 2013Q4

REPORT INFORMATION
  Report Type: Spontaneous
  Country: SE (occurrence: SE)
  Receive Date: 20130830
  Receipt Date: 20131014
  Transmission Date: 20140711
  Serious: Yes (Hospitalization, Other)
  Sender: FDA-Public Use
  Company Number: SE-ELI_LILLY_AND_COMPANY-SE201308007870

PATIENT
  Age: 68 Year
  Sex: Male

DRUGS (3)
  1. HUMULIN NPH [Suspect]
     Indication: DIABETES MELLITUS
     Dosage: 12 U, QD
     Dates: start: 20120426
  2. HUMULIN NPH [Suspect]
     Dosage: 30 DF, UNK
  3. HUMALOG LISPRO [Suspect]
     Dosage: UNK
     Dates: start: 201209

REACTIONS (4)
  - Chronic obstructive pulmonary disease [Recovered/Resolved]
  - Blood glucose increased [Recovered/Resolved]
  - Wrong drug administered [Recovered/Resolved]
  - Blood glucose fluctuation [Recovered/Resolved]
